FAERS Safety Report 4277243-3 (Version None)
Quarter: 2004Q1

REPORT INFORMATION
  Report Type: 
  Country: None (occurrence: None)
  Receive Date: 20040120
  Receipt Date: 20040106
  Transmission Date: 20041129
  Serious: Yes (Other)
  Sender: FDA-Public Use
  Company Number: NSADSS2002033771

PATIENT
  Age: 69 Year
  Sex: Male

DRUGS (3)
  1. REMICADE [Suspect]
     Indication: CROHN'S DISEASE
     Dosage: 5 MG/KG, 1 IN 1 AS NECESSARY, INTRAVENOUS DRIP
     Route: 041
     Dates: start: 20020801
  2. PREDNISONE [Concomitant]
  3. PURINETHOL [Concomitant]

REACTIONS (2)
  - ATYPICAL MYCOBACTERIAL INFECTION [None]
  - MASS [None]
